FAERS Safety Report 5636128-8 (Version None)
Quarter: 2008Q1

REPORT INFORMATION
  Report Type: 
  Country: None (occurrence: None)
  Receive Date: 20080219
  Receipt Date: 20080130
  Transmission Date: 20080703
  Serious: Yes (Hospitalization)
  Sender: FDA-Public Use
  Company Number: 8029702

PATIENT
  Age: 17 Year
  Sex: Female
  Weight: 30 kg

DRUGS (3)
  1. KEPPRA [Suspect]
     Dosage: 1250 MG /D
     Dates: start: 20070101, end: 20080101
  2. KEPPRA [Suspect]
     Dosage: 2500 MG /D
     Dates: start: 20080101, end: 20080129
  3. KEPPRA [Suspect]
     Indication: EPILEPSY

REACTIONS (2)
  - ACCIDENTAL OVERDOSE [None]
  - DRUG PRESCRIBING ERROR [None]
